FAERS Safety Report 9851739 (Version 1)
Quarter: 2014Q1

REPORT INFORMATION
  Report Type: Spontaneous
  Country: CN (occurrence: CN)
  Receive Date: 20140129
  Receipt Date: 20140129
  Transmission Date: 20141002
  Serious: Yes (Hospitalization)
  Sender: FDA-Public Use
  Company Number: CN-ROCHE-1338901

PATIENT
  Age: 42 Year
  Sex: Female

DRUGS (2)
  1. TAMIFLU [Suspect]
     Indication: AVIAN INFLUENZA
     Route: 065
     Dates: start: 20140108, end: 20140118
  2. PIPERACILLIN/TAZOBACTAM [Concomitant]

REACTIONS (1)
  - Herpes zoster [Recovered/Resolved]
